FAERS Safety Report 22115518 (Version 4)
Quarter: 2023Q2

REPORT INFORMATION
  Report Type: Report from Study
  Country: US (occurrence: US)
  Receive Date: 20230320
  Receipt Date: 20230626
  Transmission Date: 20230721
  Serious: No
  Sender: FDA-Public Use
  Company Number: US-002147023-NVSC2023US058525

PATIENT
  Age: 5 Year
  Sex: Female

DRUGS (1)
  1. OMNITROPE [Suspect]
     Active Substance: SOMATROPIN
     Indication: Short stature
     Dosage: 0.8 MG (ONCE DAILY 6 DAYS WEEK)
     Route: 058
     Dates: start: 20230223

REACTIONS (6)
  - Injection site pain [Unknown]
  - Injection site bruising [Unknown]
  - Needle issue [Unknown]
  - Device leakage [Unknown]
  - Device issue [Unknown]
  - Device difficult to use [Unknown]

NARRATIVE: CASE EVENT DATE: 20230301
